FAERS Safety Report 21579666 (Version 3)
Quarter: 2023Q1

REPORT INFORMATION
  Report Type: Report from Study
  Country: US (occurrence: US)
  Receive Date: 20221110
  Receipt Date: 20230103
  Transmission Date: 20230418
  Serious: Yes (Other)
  Sender: FDA-Public Use
  Company Number: US-BAYER-2022A138412

PATIENT
  Age: 61 Year
  Sex: Female

DRUGS (4)
  1. STIVARGA [Suspect]
     Active Substance: REGORAFENIB
     Indication: Rectosigmoid cancer
     Dosage: 160 MG, QD FOR 21 DAYS ON, 7 DAYS OFF
     Route: 048
     Dates: start: 20220926
  2. STIVARGA [Suspect]
     Active Substance: REGORAFENIB
     Indication: Rectosigmoid cancer
     Dosage: DAILY DOSE 160 MG FOR 21 DAYS ON, 7 DAYS OFF
     Route: 048
     Dates: end: 2022
  3. BIOTIN [Concomitant]
     Active Substance: BIOTIN
     Dosage: UNK
  4. VITAMIN D3 [Concomitant]
     Active Substance: CHOLECALCIFEROL
     Dosage: UNK

REACTIONS (27)
  - Neuropathy peripheral [None]
  - Tumour haemorrhage [Unknown]
  - Flatulence [Unknown]
  - Abdominal discomfort [Unknown]
  - Decreased appetite [Unknown]
  - Pain in extremity [Not Recovered/Not Resolved]
  - Irritable bowel syndrome [None]
  - Fatigue [None]
  - Hyperhidrosis [None]
  - Chills [None]
  - Memory impairment [None]
  - Skin exfoliation [None]
  - Tenderness [None]
  - Pain [None]
  - Hot flush [Unknown]
  - Nausea [Unknown]
  - Abdominal pain upper [Unknown]
  - Headache [Unknown]
  - Gastric pH decreased [Unknown]
  - Diarrhoea [Unknown]
  - Muscle spasms [Unknown]
  - Decreased appetite [Unknown]
  - Fatigue [Unknown]
  - Nausea [Unknown]
  - Alopecia [Unknown]
  - Weight decreased [Unknown]
  - Feeling abnormal [Unknown]

NARRATIVE: CASE EVENT DATE: 20221001
